FAERS Safety Report 15302380 (Version 1)
Quarter: 2018Q4

REPORT INFORMATION
  Report Type: Spontaneous
  Country: None (occurrence: CN)
  Receive Date: 20180821
  Receipt Date: 20180821
  Transmission Date: 20190204
  Serious: No
  Sender: FDA-Public Use
  Company Number: CN-B. BRAUN MEDICAL INC.-2054016

PATIENT
  Age: 58 Year
  Sex: Female
  Weight: 64 kg

DRUGS (3)
  1. NUTRILIPID I.V. FAT EMULSION [Suspect]
     Active Substance: SOYBEAN OIL
     Indication: NUTRITIONAL SUPPLEMENTATION
     Route: 041
     Dates: start: 20170919, end: 20170919
  2. ASPARTATE POTASSIUM [Concomitant]
     Active Substance: POTASSIUM ASPARTATE
     Route: 041
     Dates: start: 20170919, end: 20170919
  3. AMINO ACIDS NOS [Suspect]
     Active Substance: AMINO ACIDS
     Route: 041
     Dates: start: 20170919, end: 20170919

REACTIONS (1)
  - Dizziness [Recovered/Resolved]

NARRATIVE: CASE EVENT DATE: 20170919
